FAERS Safety Report 5358175-6 (Version None)
Quarter: 2007Q2

REPORT INFORMATION
  Report Type: 
  Country: None (occurrence: None)
  Receive Date: 20070530
  Receipt Date: 20061130
  Transmission Date: 20071010
  Serious: Yes (Hospitalization)
  Sender: FDA-Public Use
  Company Number: US200605004572

PATIENT
  Age: 64 Year
  Sex: Female
  Weight: 77.1 kg

DRUGS (4)
  1. ZYPREXA [Suspect]
     Dosage: 10 MG
     Dates: start: 19840201, end: 20050501
  2. RISPERIDONE [Concomitant]
  3. HALOPERIDOL [Concomitant]
  4. DIVALPROEX SODIUM [Concomitant]

REACTIONS (1)
  - DIABETES MELLITUS [None]
